FAERS Safety Report 5612251-9 (Version None)
Quarter: 2008Q1

REPORT INFORMATION
  Report Type: 
  Country: None (occurrence: None)
  Receive Date: 20080131
  Receipt Date: 20080131
  Transmission Date: 20080703
  Serious: Yes (Hospitalization)
  Sender: FDA-Public Use
  Company Number: None

PATIENT
  Age: 60 Year
  Sex: Male
  Weight: 92 kg

DRUGS (10)
  1. GLEEVEC [Suspect]
     Indication: RENAL CELL CARCINOMA
     Dosage: 600MG PER DAY PO
     Route: 048
     Dates: start: 20071223, end: 20071223
  2. RAD 001 2.5MG NOVARTIS [Suspect]
     Indication: RENAL CELL CARCINOMA
     Dosage: 2.5MG PER DAY PO
     Route: 048
     Dates: start: 20080128, end: 20080128
  3. REQUIP [Concomitant]
  4. HYDROCHLOROTHIAZIDE [Concomitant]
  5. NEXIUM [Concomitant]
  6. IMODIUM [Concomitant]
  7. OXYCODONE HCL [Concomitant]
  8. LYRICA [Concomitant]
  9. EFFEXOR XR [Concomitant]
  10. AMBIEN [Concomitant]

REACTIONS (6)
  - DIARRHOEA [None]
  - FATIGUE [None]
  - LYMPHADENOPATHY MEDIASTINAL [None]
  - NAUSEA [None]
  - PLEURAL EFFUSION [None]
  - RASH [None]
